FAERS Safety Report 7533551-1 (Version None)
Quarter: 2011Q2

REPORT INFORMATION
  Report Type: 
  Country: None (occurrence: None)
  Receive Date: 20110608
  Receipt Date: 20060202
  Transmission Date: 20111010
  Serious: Yes (Other)
  Sender: FDA-Public Use
  Company Number: PHHO2006NZ02041

PATIENT
  Sex: Male

DRUGS (3)
  1. CLOZARIL [Suspect]
     Dosage: 125 MG/DAILY
     Route: 048
     Dates: start: 20051228, end: 20060103
  2. CLOZARIL [Suspect]
     Dosage: 200-300 MG/DAILY
     Dates: start: 20060111
  3. CLOZARIL [Suspect]
     Dosage: NO TREATMENT
     Route: 048
     Dates: start: 20060104, end: 20060110

REACTIONS (5)
  - MALAISE [None]
  - PLEURAL EFFUSION [None]
  - TACHYPNOEA [None]
  - POLYSEROSITIS [None]
  - TACHYCARDIA [None]
